FAERS Safety Report 8078130-5 (Version None)
Quarter: 2012Q1

REPORT INFORMATION
  Report Type: 
  Country: None (occurrence: None)
  Receive Date: 20120127
  Receipt Date: 20110119
  Transmission Date: 20120608
  Serious: Yes (Other)
  Sender: FDA-Public Use
  Company Number: US-ABBOTT-10P-163-0688961-00

PATIENT
  Sex: Male
  Weight: 83.082 kg

DRUGS (2)
  1. HUMIRA [Suspect]
     Indication: PSORIATIC ARTHROPATHY
     Dates: start: 20100701
  2. HUMIRA [Suspect]
     Indication: PSORIASIS
     Dates: start: 20070501, end: 20100201

REACTIONS (1)
  - NASOPHARYNGEAL CANCER [None]
